FAERS Safety Report 5585551-9 (Version None)
Quarter: 2008Q1

REPORT INFORMATION
  Report Type: 
  Country: None (occurrence: None)
  Receive Date: 20080109
  Receipt Date: 20080103
  Transmission Date: 20080703
  Serious: Yes (Other)
  Sender: FDA-Public Use
  Company Number: B0360777A

PATIENT
  Sex: Male

DRUGS (2)
  1. PAROXETINE HYDROCHLORIDE [Suspect]
     Route: 065
     Dates: start: 19971117
  2. PAROXETINE HYDROCHLORIDE [Suspect]
     Route: 065
     Dates: start: 20040901

REACTIONS (17)
  - AGGRESSION [None]
  - AGITATION [None]
  - AKATHISIA [None]
  - ARTHRALGIA [None]
  - CONFUSIONAL STATE [None]
  - DIZZINESS [None]
  - DRUG WITHDRAWAL SYNDROME [None]
  - INFLUENZA LIKE ILLNESS [None]
  - MOOD SWINGS [None]
  - MUSCLE SPASMS [None]
  - MYALGIA [None]
  - NIGHT SWEATS [None]
  - PARAESTHESIA [None]
  - SLEEP DISORDER [None]
  - SUICIDAL IDEATION [None]
  - TENSION [None]
  - TINNITUS [None]
